FAERS Safety Report 11021256 (Version 3)
Quarter: 2015Q3

REPORT INFORMATION
  Report Type: Report from Study
  Country: ES (occurrence: ES)
  Receive Date: 20150413
  Receipt Date: 20150807
  Transmission Date: 20151125
  Serious: Yes (Hospitalization)
  Sender: FDA-Public Use
  Company Number: ES-AMGEN-ESPCT2015033948

PATIENT
  Age: 70 Year
  Sex: Male

DRUGS (2)
  1. PACLITAXEL. [Concomitant]
     Active Substance: PACLITAXEL
     Indication: HEAD AND NECK CANCER
     Dosage: 159 MG, UNK
     Route: 042
     Dates: start: 20141107, end: 20141226
  2. PANITUMUMAB [Suspect]
     Active Substance: PANITUMUMAB
     Indication: HEAD AND NECK CANCER
     Dosage: 504 MG, UNK
     Route: 042
     Dates: start: 20141107

REACTIONS (1)
  - Oropharyngeal candidiasis [Recovered/Resolved]

NARRATIVE: CASE EVENT DATE: 20150402
